FAERS Safety Report 4438659-5 (Version None)
Quarter: 2004Q3

REPORT INFORMATION
  Report Type: 
  Country: None (occurrence: None)
  Receive Date: 20040830
  Receipt Date: 20040830
  Transmission Date: 20050211
  Serious: Yes (Death)
  Sender: FDA-Public Use
  Company Number: None

PATIENT
  Age: 70 Year
  Sex: Male
  Weight: 65.7716 kg

DRUGS (2)
  1. CYPHER STENT 3.5MM X 18MM CORDIS [Suspect]
     Indication: VASCULAR OCCLUSION
  2. CYPHER STENT 3.5MM X 18MM CORDIS [Suspect]

REACTIONS (2)
  - CEREBROVASCULAR ACCIDENT [None]
  - GENERAL PHYSICAL HEALTH DETERIORATION [None]
